FAERS Safety Report 12238204 (Version 1)
Quarter: 2016Q2

REPORT INFORMATION
  Report Type: Report from Study
  Country: BR (occurrence: BR)
  Receive Date: 20160405
  Receipt Date: 20160405
  Transmission Date: 20160815
  Serious: Yes (Other)
  Sender: FDA-Public Use
  Company Number: BR-JNJFOC-20160401255

PATIENT
  Sex: Male

DRUGS (2)
  1. REMICADE [Suspect]
     Active Substance: INFLIXIMAB
     Indication: CROHN^S DISEASE
     Route: 042
     Dates: start: 201301, end: 201501
  2. MESALAZINE [Concomitant]
     Active Substance: MESALAMINE
     Route: 065

REACTIONS (7)
  - Myalgia [Unknown]
  - Hypersensitivity [Unknown]
  - Arthralgia [Unknown]
  - Dyspnoea [Unknown]
  - Exophthalmos [Unknown]
  - Infusion related reaction [Unknown]
  - Pulse abnormal [Unknown]

NARRATIVE: CASE EVENT DATE: 2014
